FAERS Safety Report 4716268-8 (Version None)
Quarter: 2005Q2

REPORT INFORMATION
  Report Type: 
  Country: None (occurrence: None)
  Receive Date: 20050630
  Receipt Date: 20050224
  Transmission Date: 20051028
  Serious: Yes (Hospitalization, Other)
  Sender: FDA-Public Use
  Company Number: US_010667441

PATIENT
  Age: 41 Year
  Sex: Female
  Weight: 41 kg

DRUGS (10)
  1. LENTE ILETIN II (PORK) [Suspect]
     Indication: DIABETES MELLITUS
     Dosage: 11 U/DAY
     Dates: start: 19710101
  2. REGULAR INSULIN [Suspect]
     Indication: DIABETES MELLITUS
     Dosage: 19 U/DAY
     Dates: start: 19710101
  3. LENTE ILETIN (BEEF-PORK) INSULIN ZINC [Suspect]
     Indication: DIABETES MELLITUS
     Dates: end: 19710101
  4. REGULAR ILETIN II [Suspect]
     Indication: DIABETES MELLITUS
     Dates: end: 19710101
  5. ILETIN II [Suspect]
     Indication: DIABETES MELLITUS
  6. NPH ILETIN I (BEEF-PORK) [Suspect]
     Indication: DIABETES MELLITUS INSULIN-DEPENDENT
  7. HUMULIN L [Suspect]
     Indication: DIABETES MELLITUS
     Dates: start: 20030101
  8. HUMULIN R [Suspect]
     Indication: DIABETES MELLITUS
     Dates: start: 20030101
  9. HUMALOG [Suspect]
     Indication: DIABETES MELLITUS
     Dates: start: 20040101
  10. CLONIDINE [Concomitant]

REACTIONS (28)
  - ANGINA PECTORIS [None]
  - ANTIDIURETIC HORMONE ABNORMALITY [None]
  - ARTERIAL OCCLUSIVE DISEASE [None]
  - ARTHRITIS [None]
  - BACK PAIN [None]
  - BALANCE DISORDER [None]
  - BLOOD GLUCOSE DECREASED [None]
  - BLOOD GLUCOSE INCREASED [None]
  - CARPAL TUNNEL SYNDROME [None]
  - CARTILAGE INJURY [None]
  - DIABETIC NEUROPATHY [None]
  - DRUG INEFFECTIVE [None]
  - DYSPEPSIA [None]
  - HYPERTENSION [None]
  - HYPOAESTHESIA [None]
  - HYPOGLYCAEMIA UNAWARENESS [None]
  - HYPOTHYROIDISM [None]
  - LIMB INJURY [None]
  - LIPOATROPHY [None]
  - MUSCLE SPASMS [None]
  - NERVE INJURY [None]
  - PAIN [None]
  - PEPTIC ULCER [None]
  - PHOTOPSIA [None]
  - RENAL DISORDER [None]
  - TRIGGER FINGER [None]
  - VASCULAR INJURY [None]
  - VESTIBULAR NEURONITIS [None]
